FAERS Safety Report 19376605 (Version 1)
Quarter: 2021Q2

REPORT INFORMATION
  Report Type: Spontaneous
  Country: US (occurrence: US)
  Receive Date: 20210604
  Receipt Date: 20210604
  Transmission Date: 20210717
  Serious: Yes (Other)
  Sender: FDA-Public Use
  Company Number: US-SA-2021SA175962

PATIENT
  Age: 77 Year
  Sex: Female
  Weight: 68 kg

DRUGS (2)
  1. ASPIRINE [Suspect]
     Active Substance: ASPIRIN
     Dosage: UNK
     Dates: end: 2013
  2. MULTAQ [Suspect]
     Active Substance: DRONEDARONE
     Indication: ATRIAL FIBRILLATION
     Dosage: 400 MG, BID

REACTIONS (3)
  - Haematochezia [Recovered/Resolved]
  - Drug ineffective [Unknown]
  - Self-medication [Unknown]

NARRATIVE: CASE EVENT DATE: 2013
